FAERS Safety Report 19862967 (Version 2)
Quarter: 2021Q4

REPORT INFORMATION
  Report Type: Other
  Country: US (occurrence: US)
  Receive Date: 20210921
  Receipt Date: 20211221
  Transmission Date: 20220303
  Serious: No
  Sender: FDA-Public Use
  Company Number: US-ACORDA-ACO_169801_2021

PATIENT
  Age: 58 Year
  Sex: Female

DRUGS (4)
  1. INBRIJA [Suspect]
     Active Substance: LEVODOPA
     Indication: Parkinson^s disease
     Dosage: 84 MILLIGRAM, PRN (NOT TO EXCEED 5 DOSES A DAY)
     Dates: start: 20210617
  2. INBRIJA [Suspect]
     Active Substance: LEVODOPA
     Indication: On and off phenomenon
  3. SINEMET [Concomitant]
     Active Substance: CARBIDOPA\LEVODOPA
     Indication: Product used for unknown indication
     Dosage: 25/100 MG: 1.5 TABLETS 3X/DAY
     Route: 065
  4. SINEMET [Concomitant]
     Active Substance: CARBIDOPA\LEVODOPA
     Dosage: 50/200 MG: 1 TABLET @ BEDTIME
     Route: 065

REACTIONS (8)
  - Throat irritation [Unknown]
  - Dysphonia [Unknown]
  - Throat clearing [Unknown]
  - Fatigue [Unknown]
  - Device difficult to use [Unknown]
  - Secretion discharge [Unknown]
  - Cough [Not Recovered/Not Resolved]
  - Oropharyngeal pain [Unknown]

NARRATIVE: CASE EVENT DATE: 20210712
